FAERS Safety Report 8377465-6 (Version None)
Quarter: 2012Q2

REPORT INFORMATION
  Report Type: 
  Country: None (occurrence: None)
  Receive Date: 20120522
  Receipt Date: 20110413
  Transmission Date: 20120825
  Serious: No
  Sender: FDA-Public Use
  Company Number: US-ASTRAZENECA-2011SE21859

PATIENT
  Sex: Female

DRUGS (8)
  1. PRILOSEC [Suspect]
     Indication: GASTROOESOPHAGEAL REFLUX DISEASE
  2. PRILOSEC [Suspect]
     Indication: EROSIVE OESOPHAGITIS
  3. OMEPRAZOLE [Suspect]
     Indication: EROSIVE OESOPHAGITIS
  4. ZEGERID [Suspect]
     Indication: GASTROOESOPHAGEAL REFLUX DISEASE
  5. ZEGERID [Suspect]
     Indication: EROSIVE OESOPHAGITIS
  6. OMEPRAZOLE [Suspect]
     Indication: GASTROOESOPHAGEAL REFLUX DISEASE
  7. ZANTAC [Suspect]
     Indication: EROSIVE OESOPHAGITIS
  8. ZANTAC [Suspect]
     Indication: GASTROOESOPHAGEAL REFLUX DISEASE

REACTIONS (2)
  - GASTROOESOPHAGEAL REFLUX DISEASE [None]
  - DRUG INEFFECTIVE [None]
